FAERS Safety Report 22265341 (Version 1)
Quarter: 2023Q2

REPORT INFORMATION
  Report Type: Spontaneous
  Country: ES (occurrence: None)
  Receive Date: 20230428
  Receipt Date: 20230428
  Transmission Date: 20230721
  Serious: Yes (Hospitalization)
  Sender: FDA-Public Use
  Company Number: 2023A094181

PATIENT
  Age: 65 Year
  Sex: Female

DRUGS (1)
  1. SEROQUEL XR [Suspect]
     Active Substance: QUETIAPINE FUMARATE
     Dosage: 150.0MG UNKNOWN
     Route: 048

REACTIONS (10)
  - Varicella zoster virus infection [Unknown]
  - Hepatitis A [Unknown]
  - Lip injury [Unknown]
  - Oral pruritus [Unknown]
  - Bruxism [Unknown]
  - Speech disorder [Unknown]
  - Amnesia [Unknown]
  - Fall [Unknown]
  - Tongue movement disturbance [Unknown]
  - Dry mouth [Unknown]
